FAERS Safety Report 4947751-8 (Version None)
Quarter: 2006Q1

REPORT INFORMATION
  Report Type: 
  Country: None (occurrence: None)
  Receive Date: 20060313
  Receipt Date: 20060303
  Transmission Date: 20060701
  Serious: Yes (Death)
  Sender: FDA-Public Use
  Company Number: ZONI002283

PATIENT
  Age: 73 Year
  Sex: Male

DRUGS (4)
  1. ZONISAMIDE [Suspect]
     Indication: EPILEPSY
     Dosage: ORAL
     Route: 048
     Dates: start: 20060124
  2. LEVOFLOXACIN [Suspect]
  3. AMLODIPINE BESYLATE [Concomitant]
  4. DIAZEPAM [Concomitant]

REACTIONS (1)
  - STEVENS-JOHNSON SYNDROME [None]
